FAERS Safety Report 7909779-5 (Version None)
Quarter: 2011Q4

REPORT INFORMATION
  Report Type: 
  Country: None (occurrence: None)
  Receive Date: 20111111
  Receipt Date: 20110801
  Transmission Date: 20120403
  Serious: No
  Sender: FDA-Public Use
  Company Number: US-BAYER-2011-069794

PATIENT
  Sex: Female
  Weight: 95 kg

DRUGS (6)
  1. LISINOPRIL [Concomitant]
  2. DYAZIDE [Concomitant]
  3. PLAQUENIL [Concomitant]
  4. LEXAPRO [Concomitant]
  5. LEVOTHYROXINE SODIUM [Concomitant]
  6. ALEVE (CAPLET) [Suspect]
     Indication: BACK PAIN
     Dosage: 2 DF, BID
     Route: 048
     Dates: end: 20110728

REACTIONS (1)
  - NO ADVERSE EVENT [None]
